FAERS Safety Report 26040020 (Version 1)
Quarter: 2025Q4

REPORT INFORMATION
  Report Type: Report from Study
  Country: US (occurrence: US)
  Receive Date: 20251113
  Receipt Date: 20251113
  Transmission Date: 20260118
  Serious: No
  Sender: JOHNSON AND JOHNSON
  Company Number: US-JNJFOC-20250932657

PATIENT
  Age: 64 Year
  Sex: Female

DRUGS (1)
  1. GUSELKUMAB [Suspect]
     Active Substance: GUSELKUMAB
     Indication: Product used for unknown indication
     Route: 065

REACTIONS (4)
  - Needle issue [Unknown]
  - Product dose omission issue [Unknown]
  - Injection site bruising [Unknown]
  - Accidental exposure to product [Unknown]

NARRATIVE: CASE EVENT DATE: 20250618
